FAERS Safety Report 7819250-7 (Version None)
Quarter: 2011Q4

REPORT INFORMATION
  Report Type: 
  Country: None (occurrence: None)
  Receive Date: 20111018
  Receipt Date: 20100823
  Transmission Date: 20120403
  Serious: No
  Sender: FDA-Public Use
  Company Number: US-ASTRAZENECA-2010SE39478

PATIENT
  Age: 78 Year
  Sex: Female

DRUGS (1)
  1. SYMBICORT [Suspect]
     Indication: CHRONIC OBSTRUCTIVE PULMONARY DISEASE
     Dosage: 640 MCG BID
     Route: 055
     Dates: start: 20100701

REACTIONS (2)
  - HYPERTENSION [None]
  - INCORRECT DOSE ADMINISTERED [None]
